FAERS Safety Report 7851319 (Version 3)
Quarter: 2014Q1

REPORT INFORMATION
  Report Type: Spontaneous
  Country: US (occurrence: US)
  Receive Date: 20110310
  Receipt Date: 20140326
  Transmission Date: 20141002
  Serious: Yes (Hospitalization, Other)
  Sender: FDA-Public Use
  Company Number: US-ASTRAZENECA-2010SE16733

PATIENT
  Age: 78 Year
  Sex: Female
  Weight: 86.2 kg

DRUGS (16)
  1. NEXIUM [Suspect]
     Indication: GASTROOESOPHAGEAL REFLUX DISEASE
     Route: 048
     Dates: start: 2010, end: 20140301
  2. BYETTA [Concomitant]
     Indication: BLOOD GLUCOSE ABNORMAL
     Route: 058
  3. VERAPAMIL [Concomitant]
     Indication: CARDIAC DISORDER
     Route: 048
  4. SYNTHROID [Concomitant]
     Indication: THYROID DISORDER
     Route: 048
     Dates: end: 201402
  5. SYNTHROID [Concomitant]
     Indication: THYROID DISORDER
     Route: 048
     Dates: start: 201402
  6. ZOCOR [Concomitant]
     Indication: BLOOD CHOLESTEROL ABNORMAL
     Route: 048
  7. NITROPATCH [Concomitant]
     Indication: ANGINA PECTORIS
     Route: 048
     Dates: start: 2009
  8. OXYCODONE [Concomitant]
     Indication: SCOLIOSIS
     Route: 048
     Dates: start: 2013
  9. OXYCODONE [Concomitant]
     Indication: SCOLIOSIS
     Dosage: PRN
  10. VITAMIN C [Concomitant]
     Indication: SUPPLEMENTATION THERAPY
     Route: 048
  11. VITAMIN B COMPLEX [Concomitant]
     Indication: SUPPLEMENTATION THERAPY
     Route: 048
  12. CALCIUM [Concomitant]
     Indication: SUPPLEMENTATION THERAPY
     Route: 048
  13. MULTIVITAMIN [Concomitant]
     Indication: SUPPLEMENTATION THERAPY
     Dosage: DAILY
     Route: 048
  14. FISH OIL [Concomitant]
     Indication: SUPPLEMENTATION THERAPY
     Route: 048
  15. ASPIRIN [Concomitant]
     Indication: CARDIAC DISORDER
     Dosage: ON MONDAY, WEDNESDAY AND FRIDAY
     Route: 048
  16. COUMADIN [Concomitant]
     Indication: CEREBROVASCULAR ACCIDENT
     Dosage: 8MG ON ONE DAY TO 4MG THE NEXT DAY UP TO A TOTAL OF 44 MG IN 1 WEEK
     Route: 048

REACTIONS (16)
  - Transient ischaemic attack [Unknown]
  - Spinal fracture [Unknown]
  - Fall [Unknown]
  - Hernia [Unknown]
  - Post procedural complication [Unknown]
  - Barrett^s oesophagus [Unknown]
  - Bronchitis [Unknown]
  - Dyspepsia [Unknown]
  - Body height decreased [Unknown]
  - Pain in extremity [Unknown]
  - Thyroid function test abnormal [Unknown]
  - Osteoporosis [Unknown]
  - Malaise [Unknown]
  - Off label use [Unknown]
  - Drug dose omission [Unknown]
  - Intentional drug misuse [Unknown]
